FAERS Safety Report 25021729 (Version 2)
Quarter: 2025Q1

REPORT INFORMATION
  Report Type: Spontaneous
  Country: US (occurrence: US)
  Receive Date: 20250228
  Receipt Date: 20250319
  Transmission Date: 20250409
  Serious: No
  Sender: LUPIN
  Company Number: US-LUPIN PHARMACEUTICALS INC.-2025-00525

PATIENT
  Age: 76 Year
  Weight: 90.703 kg

DRUGS (1)
  1. BUDESONIDE [Suspect]
     Active Substance: BUDESONIDE
     Indication: Sinus disorder
     Route: 065

REACTIONS (3)
  - Product prescribing issue [Unknown]
  - Wrong product administered [Unknown]
  - No adverse event [Unknown]
